FAERS Safety Report 6907285-8 (Version None)
Quarter: 2010Q3

REPORT INFORMATION
  Report Type: 
  Country: None (occurrence: None)
  Receive Date: 20100804
  Receipt Date: 20100728
  Transmission Date: 20110219
  Serious: Yes (Other)
  Sender: FDA-Public Use
  Company Number: US-AMGEN-QUU427658

PATIENT
  Age: 47 Year
  Sex: Female
  Weight: 96.7 kg

DRUGS (1)
  1. NEULASTA [Suspect]
     Indication: CHEMOTHERAPY
     Route: 065

REACTIONS (2)
  - BONE PAIN [None]
  - BREAST CANCER RECURRENT [None]
